FAERS Safety Report 14354148 (Version 1)
Quarter: 2018Q1

REPORT INFORMATION
  Report Type: Spontaneous
  Country: FR (occurrence: FR)
  Receive Date: 20180105
  Receipt Date: 20180105
  Transmission Date: 20180509
  Serious: Yes (Other)
  Sender: FDA-Public Use
  Company Number: FR-CIPLA LTD.-2017FR30110

PATIENT

DRUGS (4)
  1. INEXIUM [Interacting]
     Active Substance: ESOMEPRAZOLE
     Indication: HIATUS HERNIA
     Dosage: 1 DF, UNK
     Route: 048
     Dates: start: 201005, end: 20170402
  2. ESCITALOPRAM [Suspect]
     Active Substance: ESCITALOPRAM OXALATE
     Indication: ABDOMINAL PAIN
     Dosage: 10 MG, UNK
     Route: 048
  3. PRAVASTATINE SODIQUE [Concomitant]
     Active Substance: PRAVASTATIN SODIUM
     Indication: HYPERCHOLESTEROLAEMIA
     Dosage: 20 MG, UNK
     Route: 048
  4. PREGABALINE [Concomitant]
     Active Substance: PREGABALIN
     Indication: PAIN IN EXTREMITY
     Dosage: 50 MG, UNK
     Route: 048
     Dates: start: 20160622

REACTIONS (6)
  - Arthralgia [Recovered/Resolved]
  - Testicular pain [Recovered/Resolved]
  - Myalgia [Recovered/Resolved]
  - Formication [Recovered/Resolved]
  - Hyperkalaemia [Unknown]
  - Condition aggravated [Recovered/Resolved]

NARRATIVE: CASE EVENT DATE: 2016
